FAERS Safety Report 18547267 (Version 1)
Quarter: 2020Q4

REPORT INFORMATION
  Report Type: Other
  Country: CA (occurrence: CA)
  Receive Date: 20201126
  Receipt Date: 20201126
  Transmission Date: 20210114
  Serious: Yes (Other)
  Sender: FDA-Public Use
  Company Number: CA-CELLTRION INC.-2020CA032105

PATIENT

DRUGS (14)
  1. RITUXIMAB (UNKNOWN) [Suspect]
     Active Substance: RITUXIMAB
     Indication: PRODUCT USED FOR UNKNOWN INDICATION
     Dosage: 1000 MG
     Route: 042
  2. DIPHENHYDRAMINE. [Concomitant]
     Active Substance: DIPHENHYDRAMINE
     Dosage: 50 MG
     Route: 048
  3. METHYLPREDNISOLONE. [Concomitant]
     Active Substance: METHYLPREDNISOLONE
     Dosage: 100 MG
     Route: 042
  4. PERINDOPRIL [Concomitant]
     Active Substance: PERINDOPRIL
     Dosage: 4 MG, 1 EVERY 1 DAYS
     Route: 065
  5. RITUXIMAB (UNKNOWN) [Suspect]
     Active Substance: RITUXIMAB
     Dosage: 900 MG, 1 EVERY 15 DAYS
     Route: 042
  6. ACETAMINOPHEN. [Concomitant]
     Active Substance: ACETAMINOPHEN
     Dosage: 650 MG
     Route: 048
  7. ALENDRONATE [Concomitant]
     Active Substance: ALENDRONATE SODIUM
     Route: 065
  8. CELEBREX [Concomitant]
     Active Substance: CELECOXIB
     Dosage: 200 MG, 2 EVERY 1 DAYS
     Route: 048
  9. OXAZEPAM. [Concomitant]
     Active Substance: OXAZEPAM
     Dosage: 15 MG, 1 EVERY 1 DAYS
     Route: 065
  10. SOLU-MEDROL [Concomitant]
     Active Substance: METHYLPREDNISOLONE SODIUM SUCCINATE
     Dosage: 100 MG
     Route: 042
  11. RITUXIMAB (UNKNOWN) [Suspect]
     Active Substance: RITUXIMAB
     Dosage: 750 MG
     Route: 042
  12. RITUXIMAB (UNKNOWN) [Suspect]
     Active Substance: RITUXIMAB
     Dosage: 1000 MG
     Route: 042
  13. INDAPAMIDE. [Concomitant]
     Active Substance: INDAPAMIDE
     Dosage: 1.25 MG
     Route: 065
  14. RITUXIMAB (UNKNOWN) [Suspect]
     Active Substance: RITUXIMAB
     Dosage: 750 MG
     Route: 042

REACTIONS (23)
  - Fall [Not Recovered/Not Resolved]
  - Skin laceration [Not Recovered/Not Resolved]
  - Arthropathy [Not Recovered/Not Resolved]
  - Finger deformity [Not Recovered/Not Resolved]
  - Hepatic enzyme increased [Not Recovered/Not Resolved]
  - Rheumatoid arthritis [Not Recovered/Not Resolved]
  - Cholelithiasis [Not Recovered/Not Resolved]
  - Limb injury [Not Recovered/Not Resolved]
  - Erythema [Not Recovered/Not Resolved]
  - Musculoskeletal pain [Not Recovered/Not Resolved]
  - Pain in extremity [Not Recovered/Not Resolved]
  - Peripheral swelling [Not Recovered/Not Resolved]
  - Viral infection [Not Recovered/Not Resolved]
  - Joint dislocation [Not Recovered/Not Resolved]
  - Spinal osteoarthritis [Not Recovered/Not Resolved]
  - Accident [Not Recovered/Not Resolved]
  - Hand deformity [Not Recovered/Not Resolved]
  - Diarrhoea [Not Recovered/Not Resolved]
  - Neck pain [Not Recovered/Not Resolved]
  - Bone pain [Not Recovered/Not Resolved]
  - Foot deformity [Not Recovered/Not Resolved]
  - Nodule [Not Recovered/Not Resolved]
  - Arthralgia [Not Recovered/Not Resolved]
